FAERS Safety Report 22339486 (Version 9)
Quarter: 2024Q1

REPORT INFORMATION
  Report Type: Report from Study
  Country: MX (occurrence: MX)
  Receive Date: 20230518
  Receipt Date: 20240101
  Transmission Date: 20240410
  Serious: Yes (Other)
  Sender: FDA-Public Use
  Company Number: MX-002147023-NVSC2023MX086528

PATIENT
  Sex: Female

DRUGS (2)
  1. TASIGNA [Suspect]
     Active Substance: NILOTINIB
     Indication: Chronic myeloid leukaemia
     Dosage: UNK
     Route: 048
  2. CITALOPRAM [Concomitant]
     Active Substance: CITALOPRAM HYDROBROMIDE
     Indication: Product used for unknown indication
     Dosage: UNK
     Route: 065

REACTIONS (20)
  - Pyelonephritis [Unknown]
  - Diabetes mellitus [Unknown]
  - COVID-19 [Unknown]
  - Renal pain [Unknown]
  - Glycosuria [Unknown]
  - Urinary tract infection bacterial [Unknown]
  - Urine abnormality [Unknown]
  - Weight abnormal [Unknown]
  - Blood glucose decreased [Unknown]
  - Renal disorder [Unknown]
  - Depressed mood [Unknown]
  - Stress [Unknown]
  - Thinking abnormal [Unknown]
  - Insomnia [Unknown]
  - Laziness [Unknown]
  - Visual impairment [Recovering/Resolving]
  - Blood glucose increased [Unknown]
  - Asthenia [Unknown]
  - Mental fatigue [Unknown]
  - Psychiatric symptom [Unknown]

NARRATIVE: CASE EVENT DATE: 20160101
